FAERS Safety Report 7626858-0 (Version None)
Quarter: 2011Q3

REPORT INFORMATION
  Report Type: 
  Country: None (occurrence: None)
  Receive Date: 20110721
  Receipt Date: 20110224
  Transmission Date: 20111222
  Serious: No
  Sender: FDA-Public Use
  Company Number: US-BAYER-2011-061327

PATIENT
  Age: 69 Year
  Sex: Female
  Weight: 58.957 kg

DRUGS (4)
  1. DOXYCYCLINE [Concomitant]
  2. VITAMIN TAB [Concomitant]
  3. ALEVE (CAPLET) [Suspect]
     Dosage: 1 DF, BID
     Route: 048
     Dates: start: 20110708
  4. LIPITOR [Concomitant]

REACTIONS (1)
  - NO ADVERSE EVENT [None]
